FAERS Safety Report 8514928-4 (Version None)
Quarter: 2012Q3

REPORT INFORMATION
  Report Type: 
  Country: None (occurrence: None)
  Receive Date: 20120717
  Receipt Date: 20120713
  Transmission Date: 20120928
  Serious: No
  Sender: FDA-Public Use
  Company Number: US-PFIZER INC-2012169695

PATIENT
  Sex: Male
  Weight: 79.365 kg

DRUGS (4)
  1. METFORMIN [Concomitant]
     Indication: DIABETES MELLITUS
     Dosage: 500 MG, DAILY
  2. ATORVASTATIN CALCIUM [Suspect]
     Indication: BLOOD CHOLESTEROL ABNORMAL
     Dosage: 20 MG, DAILY
     Dates: start: 20120410
  3. LIPITOR [Suspect]
     Indication: BLOOD CHOLESTEROL ABNORMAL
     Dosage: UNK
     Dates: start: 20001201, end: 20120401
  4. METOPROLOL [Concomitant]
     Indication: HYPERTENSION
     Dosage: 5 MG, 2X/DAY

REACTIONS (2)
  - MUSCLE SPASMS [None]
  - ARTHRALGIA [None]
